FAERS Safety Report 8140849 (Version 4)
Quarter: 2012Q4

REPORT INFORMATION
  Report Type: Report from Study
  Country: GT (occurrence: GT)
  Receive Date: 20110916
  Receipt Date: 20121030
  Transmission Date: 20130627
  Serious: Yes (Death, Life-Threatening, Hospitalization, Disabling, Other)
  Sender: FDA-Public Use
  Company Number: PHHO2011GT15561

PATIENT
  Age: 64 Year
  Sex: Female
  Weight: 64.5 kg

DRUGS (7)
  1. WARFARIN [Suspect]
     Indication: PULMONARY EMBOLISM
     Dosage: 5 mg, QD
     Route: 048
     Dates: start: 20110805, end: 20110903
  2. LAF237 [Suspect]
     Indication: CARDIAC FAILURE CONGESTIVE
     Dosage: UNK
     Route: 048
     Dates: start: 20101019, end: 20110901
  3. ASPIRINE [Concomitant]
     Indication: CARDIAC FAILURE CONGESTIVE
     Dosage: 81 mg, QD
     Route: 048
     Dates: start: 20110819
  4. DIGOXINE [Concomitant]
     Indication: CARDIAC FAILURE CONGESTIVE
     Dosage: 0.25 mg, UNK
     Dates: start: 20091030
  5. LOSARTAN POTASSIUM W/HYDROCHLOROTHIAZIDE [Concomitant]
     Indication: HYPERTENSION
     Dosage: 50/12.5 mg
     Dates: start: 20110407
  6. BISOPROLOL [Concomitant]
     Indication: CARDIAC FAILURE CONGESTIVE
     Dosage: 2.5 mg, QD
     Route: 048
     Dates: start: 20110407
  7. FUROSEMIDE [Concomitant]
     Indication: CARDIAC FAILURE CONGESTIVE
     Dosage: 20 mg, QD
     Route: 048
     Dates: start: 20110407

REACTIONS (5)
  - Toxicity to various agents [Recovered/Resolved]
  - Septic shock [Fatal]
  - Cardiac failure congestive [Not Recovered/Not Resolved]
  - Pneumonia [Not Recovered/Not Resolved]
  - Disease progression [Not Recovered/Not Resolved]
